FAERS Safety Report 14851060 (Version 1)
Quarter: 2018Q2

REPORT INFORMATION
  Report Type: Spontaneous
  Country: US (occurrence: US)
  Receive Date: 20180507
  Receipt Date: 20180507
  Transmission Date: 20180711
  Serious: No
  Sender: FDA-Public Use
  Company Number: US-UNITED THERAPEUTICS-UNT-2018-003815

PATIENT
  Age: 50 Year
  Sex: Female
  Weight: 62.13 kg

DRUGS (2)
  1. REMODULIN [Suspect]
     Active Substance: TREPROSTINIL
     Indication: PULMONARY ARTERIAL HYPERTENSION
     Dosage: 0.02375 ?G/KG, CONTINUING
     Route: 041
     Dates: start: 20171127
  2. REMODULIN [Suspect]
     Active Substance: TREPROSTINIL
     Dosage: 0.02625 ?G/KG, CONTINUING
     Route: 041

REACTIONS (6)
  - Diarrhoea [Unknown]
  - Dermatitis contact [Unknown]
  - Asthenia [Unknown]
  - Rash pruritic [Unknown]
  - Skin haemorrhage [Unknown]
  - Influenza [Not Recovered/Not Resolved]

NARRATIVE: CASE EVENT DATE: 201802
